FAERS Safety Report 16129679 (Version 2)
Quarter: 2019Q2

REPORT INFORMATION
  Report Type: Spontaneous
  Country: FR (occurrence: FR)
  Receive Date: 20190328
  Receipt Date: 20190514
  Transmission Date: 20190711
  Serious: Yes (Life-Threatening)
  Sender: FDA-Public Use
  Company Number: FR-PFIZER INC-2019132463

PATIENT
  Age: 53 Year
  Sex: Male
  Weight: 95 kg

DRUGS (4)
  1. DOLIPRANE [Suspect]
     Active Substance: ACETAMINOPHEN
     Indication: INTENTIONAL OVERDOSE
     Dosage: 8 G, SINGLE
     Route: 048
     Dates: start: 20190227, end: 20190227
  2. EUPRESSYL [URAPIDIL] [Suspect]
     Active Substance: URAPIDIL
     Indication: INTENTIONAL OVERDOSE
     Dosage: 900 MG, SINGLE
     Route: 048
     Dates: start: 20190227, end: 20190227
  3. ALPRAZOLAM. [Suspect]
     Active Substance: ALPRAZOLAM
     Indication: INTENTIONAL OVERDOSE
     Dosage: 30 DF, SINGLE
     Route: 048
     Dates: start: 20190227, end: 20190227
  4. COVERAM [Suspect]
     Active Substance: AMLODIPINE\PERINDOPRIL
     Indication: INTENTIONAL OVERDOSE
     Dosage: 150 MG, SINGLE
     Route: 048
     Dates: start: 20190227, end: 20190227

REACTIONS (4)
  - Intentional overdose [Unknown]
  - Poisoning deliberate [Recovered/Resolved]
  - Hypotension [Recovered/Resolved]
  - Somnolence [Recovered/Resolved]

NARRATIVE: CASE EVENT DATE: 20190227
